FAERS Safety Report 9821604 (Version 2)
Quarter: 2015Q3

REPORT INFORMATION
  Report Type: Spontaneous
  Country: US (occurrence: US)
  Receive Date: 20140116
  Receipt Date: 20150804
  Transmission Date: 20151125
  Serious: No
  Sender: FDA-Public Use
  Company Number: US-BIOGENIDEC-2013BI115572

PATIENT
  Age: 65 Year
  Sex: Female

DRUGS (12)
  1. TECFIDERA [Suspect]
     Active Substance: DIMETHYL FUMARATE
     Indication: MULTIPLE SCLEROSIS
     Route: 048
     Dates: start: 201308
  2. TECFIDERA [Suspect]
     Active Substance: DIMETHYL FUMARATE
     Indication: MULTIPLE SCLEROSIS
     Route: 048
     Dates: start: 20130905, end: 20130911
  3. ADVIL LIQUID GEL [Concomitant]
  4. SYNTHROID [Concomitant]
     Active Substance: LEVOTHYROXINE SODIUM
  5. TECFIDERA [Suspect]
     Active Substance: DIMETHYL FUMARATE
     Indication: MULTIPLE SCLEROSIS
     Route: 048
     Dates: start: 20130912
  6. TOVIAZ [Concomitant]
     Active Substance: FESOTERODINE FUMARATE
  7. POLY VITAMIN [Concomitant]
  8. SINGULAIR [Concomitant]
     Active Substance: MONTELUKAST SODIUM
  9. ZOLOFT [Concomitant]
     Active Substance: SERTRALINE HYDROCHLORIDE
  10. TECFIDERA [Suspect]
     Active Substance: DIMETHYL FUMARATE
     Indication: MULTIPLE SCLEROSIS
     Route: 048
     Dates: start: 201308
  11. AVONEX [Concomitant]
     Active Substance: INTERFERON BETA-1A
     Indication: MULTIPLE SCLEROSIS
     Route: 030
     Dates: start: 19990101, end: 20130802
  12. PROTONIX [Concomitant]
     Active Substance: PANTOPRAZOLE SODIUM

REACTIONS (7)
  - Flushing [Not Recovered/Not Resolved]
  - Abdominal discomfort [Unknown]
  - Skin burning sensation [Not Recovered/Not Resolved]
  - Gastric disorder [Unknown]
  - Influenza [Not Recovered/Not Resolved]
  - Rash generalised [Not Recovered/Not Resolved]
  - Dyspepsia [Recovered/Resolved with Sequelae]

NARRATIVE: CASE EVENT DATE: 20130904
